FAERS Safety Report 7552725-7 (Version None)
Quarter: 2011Q2

REPORT INFORMATION
  Report Type: 
  Country: None (occurrence: None)
  Receive Date: 20110616
  Receipt Date: 20110427
  Transmission Date: 20111010
  Serious: No
  Sender: FDA-Public Use
  Company Number: US-ABBOTT-11P-163-0721927-00

PATIENT
  Sex: Female
  Weight: 72.64 kg

DRUGS (2)
  1. UNKNOWN MEDICATIONS (DECLINED TO PROVIDE) [Concomitant]
     Indication: PRODUCT USED FOR UNKNOWN INDICATION
  2. TRILIPIX [Suspect]
     Indication: BLOOD CHOLESTEROL
     Dates: start: 20080101, end: 20110410

REACTIONS (3)
  - MYALGIA [None]
  - MUSCLE SPASMS [None]
  - BURNING SENSATION [None]
